FAERS Safety Report 6005307-2 (Version None)
Quarter: 2008Q4

REPORT INFORMATION
  Report Type: 
  Country: None (occurrence: None)
  Receive Date: 20081216
  Receipt Date: 20081203
  Transmission Date: 20090506
  Serious: Yes (Hospitalization)
  Sender: FDA-Public Use
  Company Number: IN-AMGEN-UK269610

PATIENT
  Sex: Male

DRUGS (7)
  1. PANITUMUMAB [Suspect]
     Indication: SQUAMOUS CELL CARCINOMA
     Route: 042
     Dates: start: 20080103
  2. CISPLATIN [Suspect]
     Dates: start: 20080125
  3. FLUOROURACIL [Suspect]
     Dates: start: 20080125
  4. DEXAMETHASONE [Concomitant]
     Route: 042
     Dates: start: 20080103, end: 20080422
  5. RANITIDINE [Concomitant]
     Route: 042
     Dates: start: 20080103, end: 20080422
  6. MANNITOL [Concomitant]
     Route: 042
     Dates: start: 20080103, end: 20080401
  7. ONDANSETRON [Concomitant]
     Route: 042
     Dates: start: 20080103, end: 20080422

REACTIONS (2)
  - FEBRILE NEUTROPENIA [None]
  - NEUTROPENIA [None]
